FAERS Safety Report 8581446-7 (Version None)
Quarter: 2012Q3

REPORT INFORMATION
  Report Type: 
  Country: None (occurrence: None)
  Receive Date: 20120809
  Receipt Date: 20120731
  Transmission Date: 20120928
  Serious: Yes (Hospitalization, Disabling)
  Sender: FDA-Public Use
  Company Number: JP-BRISTOL-MYERS SQUIBB COMPANY-16832842

PATIENT
  Age: 49 Year
  Sex: Male

DRUGS (4)
  1. REYATAZ [Suspect]
     Indication: HIV INFECTION
     Dosage: 1DF: 300-400MG 01APR04-22DEC11 24DEC11-ONG
     Route: 048
     Dates: start: 20040401
  2. NORVIR [Suspect]
     Indication: HIV INFECTION
     Dosage: 06OCT05-22DEC11 24DEC11-ONG
     Route: 048
     Dates: start: 20051006
  3. COMBIVIR [Suspect]
     Indication: HIV INFECTION
     Dosage: 1APR04-22DEC11 16JAN12-ONG
     Route: 048
     Dates: start: 20040401
  4. ALLOPURINOL [Concomitant]
     Indication: HYPERURICAEMIA
     Dosage: ALOSTIOL TABS
     Route: 048
     Dates: start: 20040401

REACTIONS (2)
  - HYPERKALAEMIA [None]
  - RENAL FUNCTION TEST ABNORMAL [None]
